FAERS Safety Report 20864113 (Version 4)
Quarter: 2025Q4

REPORT INFORMATION
  Report Type: Spontaneous
  Country: US (occurrence: US)
  Receive Date: 20220523
  Receipt Date: 20251229
  Transmission Date: 20260117
  Serious: Yes (Other)
  Sender: GILEAD
  Company Number: US-GILEAD-2022-0582663

PATIENT
  Age: 58 Year
  Sex: Female

DRUGS (40)
  1. TRUVADA [Suspect]
     Active Substance: EMTRICITABINE\TENOFOVIR DISOPROXIL FUMARATE
     Indication: HIV infection
     Dosage: UNK
     Route: 048
     Dates: start: 2004, end: 20181029
  2. TRUVADA [Suspect]
     Active Substance: EMTRICITABINE\TENOFOVIR DISOPROXIL FUMARATE
     Dosage: UNK
     Route: 048
     Dates: start: 200809, end: 201803
  3. DESCOVY [Concomitant]
     Active Substance: EMTRICITABINE\TENOFOVIR ALAFENAMIDE FUMARATE
  4. NORVIR [Concomitant]
     Active Substance: RITONAVIR
  5. PREZCOBIX [Concomitant]
     Active Substance: COBICISTAT\DARUNAVIR ETHANOLATE
  6. PREZISTA [Concomitant]
     Active Substance: DARUNAVIR ETHANOLATE
  7. VIRAMUNE [Concomitant]
     Active Substance: NEVIRAPINE
  8. DAPSONE [Concomitant]
     Active Substance: DAPSONE
  9. VALACYCLOVIR [Concomitant]
     Active Substance: VALACYCLOVIR HYDROCHLORIDE
  10. BACTRIM [Concomitant]
     Active Substance: SULFAMETHOXAZOLE\TRIMETHOPRIM
  11. CIPROFLOXACIN [Concomitant]
     Active Substance: CIPROFLOXACIN
  12. CLINDAMYCIN [Concomitant]
     Active Substance: CLINDAMYCIN
  13. BENZONATATE [Concomitant]
     Active Substance: BENZONATATE
  14. HYDROCHLOROTHIAZIDE [Concomitant]
     Active Substance: HYDROCHLOROTHIAZIDE
  15. DOCONEXENT\ICOSAPENT [Concomitant]
     Active Substance: DOCONEXENT\ICOSAPENT
  16. CENTRUM SILVER [ASCORBIC ACID;BETACAROTENE;BIOTIN;CALCIUM PHOSPHATE;CH [Concomitant]
  17. CLONIDINE [Concomitant]
     Active Substance: CLONIDINE
  18. ATENOLOL [Concomitant]
     Active Substance: ATENOLOL
  19. AZITHROMYCIN [Concomitant]
     Active Substance: AZITHROMYCIN
  20. CHOLESTYRAMINE [Concomitant]
     Active Substance: CHOLESTYRAMINE
  21. GLIMEPIRIDE [Concomitant]
     Active Substance: GLIMEPIRIDE
  22. LISINOPRIL [Concomitant]
     Active Substance: LISINOPRIL
  23. PAROXETINE [Concomitant]
     Active Substance: PAROXETINE
  24. CYANOCOBALAMIN [Concomitant]
     Active Substance: CYANOCOBALAMIN
  25. METOPROLOL [Concomitant]
     Active Substance: METOPROLOL
  26. VITAMIN D2 [Concomitant]
     Active Substance: ERGOCALCIFEROL
  27. LORATADINE [Concomitant]
     Active Substance: LORATADINE
  28. IBUPROFEN [Concomitant]
     Active Substance: IBUPROFEN
  29. DOXYCYCLINE [Concomitant]
     Active Substance: DOXYCYCLINE
  30. ACETAMINOPHEN [Concomitant]
     Active Substance: ACETAMINOPHEN
  31. HYDROQUINONE [Concomitant]
     Active Substance: HYDROQUINONE
  32. ATORVASTATIN [Concomitant]
     Active Substance: ATORVASTATIN
  33. PREDNISONE [Concomitant]
     Active Substance: PREDNISONE
  34. ROSUVASTATIN [Concomitant]
     Active Substance: ROSUVASTATIN
  35. ACYCLOVIR [Concomitant]
     Active Substance: ACYCLOVIR
  36. TRAZODONE [Concomitant]
     Active Substance: TRAZODONE HYDROCHLORIDE
  37. TRADJENTA [Concomitant]
     Active Substance: LINAGLIPTIN
  38. GEMFIBROZIL [Concomitant]
     Active Substance: GEMFIBROZIL
  39. METFORMIN [Concomitant]
     Active Substance: METFORMIN HYDROCHLORIDE
  40. METRONIDAZOLE [Concomitant]
     Active Substance: METRONIDAZOLE

REACTIONS (9)
  - Chronic kidney disease [Not Recovered/Not Resolved]
  - Aortic arteriosclerosis [Not Recovered/Not Resolved]
  - Pain [Not Recovered/Not Resolved]
  - Emotional distress [Not Recovered/Not Resolved]
  - Anxiety [Not Recovered/Not Resolved]
  - Anhedonia [Not Recovered/Not Resolved]
  - Hypertension [Unknown]
  - Depression [Unknown]
  - Anaemia [Not Recovered/Not Resolved]

NARRATIVE: CASE EVENT DATE: 20130101
